FAERS Safety Report 5856308-6 (Version None)
Quarter: 2008Q3

REPORT INFORMATION
  Report Type: 
  Country: None (occurrence: None)
  Receive Date: 20080825
  Receipt Date: 20080816
  Transmission Date: 20090109
  Serious: Yes (Hospitalization, Other)
  Sender: FDA-Public Use
  Company Number: US-AMGEN-QUU301971

PATIENT
  Sex: Female

DRUGS (2)
  1. ENBREL [Suspect]
     Indication: PSORIASIS
     Route: 058
  2. ENBREL [Suspect]
     Indication: PSORIATIC ARTHROPATHY

REACTIONS (7)
  - ARTHRALGIA [None]
  - BLADDER MASS [None]
  - BLOOD URINE PRESENT [None]
  - COLON CANCER [None]
  - LOWER EXTREMITY MASS [None]
  - PSORIASIS [None]
  - URINARY INCONTINENCE [None]
